FAERS Safety Report 16115532 (Version 1)
Quarter: 2019Q1

REPORT INFORMATION
  Report Type: Spontaneous
  Country: SK (occurrence: SK)
  Receive Date: 20190325
  Receipt Date: 20190325
  Transmission Date: 20190418
  Serious: Yes (Hospitalization, Other)
  Sender: FDA-Public Use
  Company Number: SK-MYLANLABS-2019M1024651

PATIENT
  Sex: Female

DRUGS (5)
  1. CLOZAPINE MYLAN [Suspect]
     Active Substance: CLOZAPINE
     Indication: SCHIZOPHRENIA
     Dosage: 150 MILLIGRAM, QD
     Dates: start: 201608
  2. CLOZAPINE MYLAN [Suspect]
     Active Substance: CLOZAPINE
     Dosage: 100 MILLIGRAM, QD
  3. ARIPIPRAZOL [Concomitant]
     Active Substance: ARIPIPRAZOLE
     Dosage: 400 MILLIGRAM, MONTHLY
  4. ARIPIPRAZOL [Concomitant]
     Active Substance: ARIPIPRAZOLE
     Indication: SCHIZOPHRENIA
     Dosage: 15 MILLIGRAM, QD
     Dates: start: 2016
  5. CLOZAPINE MYLAN [Suspect]
     Active Substance: CLOZAPINE
     Dosage: 200 MILLIGRAM, QD

REACTIONS (4)
  - Schizophrenia [Recovering/Resolving]
  - Fatigue [Unknown]
  - Decreased activity [Unknown]
  - Vomiting [Unknown]
